FAERS Safety Report 7524467-5 (Version None)
Quarter: 2011Q2

REPORT INFORMATION
  Report Type: 
  Country: None (occurrence: None)
  Receive Date: 20110606
  Receipt Date: 20110523
  Transmission Date: 20111010
  Serious: Yes (Other)
  Sender: FDA-Public Use
  Company Number: US-JNJFOC-20110302758

PATIENT
  Sex: Male
  Weight: 110.22 kg

DRUGS (9)
  1. REMICADE [Suspect]
     Route: 042
     Dates: start: 20060316
  2. PREDNISONE [Concomitant]
  3. REMICADE [Suspect]
     Indication: RHEUMATOID ARTHRITIS
     Route: 042
     Dates: start: 20101105
  4. REMICADE [Suspect]
     Route: 042
     Dates: start: 20040101
  5. REMICADE [Suspect]
     Route: 042
     Dates: start: 20100922
  6. REMICADE [Suspect]
     Route: 042
     Dates: start: 20100506
  7. LANTUS [Concomitant]
  8. REMICADE [Suspect]
     Route: 042
     Dates: start: 20110101
  9. IMURAN [Concomitant]

REACTIONS (1)
  - PENIS CARCINOMA [None]
